FAERS Safety Report 8762000 (Version 2)
Quarter: 2012Q4

REPORT INFORMATION
  Report Type: 
  Country: US (occurrence: US)
  Receive Date: 20120830
  Receipt Date: 20120907
  Transmission Date: 20130627
  Serious: Yes (Death)
  Sender: FDA-Public Use
  Company Number: US-PFIZER INC-2012210055

PATIENT
  Age: 77 Year
  Sex: Female

DRUGS (2)
  1. VFEND [Suspect]
     Indication: ASPERGILLOSIS
     Dosage: 200 mg, 1x/day 4 tabs QD
     Route: 048
  2. VFEND [Suspect]
     Dosage: 200 mg, 2x/day

REACTIONS (1)
  - Death [Fatal]
